FAERS Safety Report 21730128 (Version 3)
Quarter: 2022Q4

REPORT INFORMATION
  Report Type: Spontaneous
  Country: DE (occurrence: DE)
  Receive Date: 20221214
  Receipt Date: 20221223
  Transmission Date: 20230113
  Serious: Yes (Other)
  Sender: FDA-Public Use
  Company Number: DE-ROCHE-3223653

PATIENT
  Sex: Male

DRUGS (19)
  1. BENDAMUSTINE HYDROCHLORIDE [Suspect]
     Active Substance: BENDAMUSTINE HYDROCHLORIDE
     Indication: Diffuse large B-cell lymphoma
     Dosage: (ONCE WITH POLATUZUMAB AND RITUXIMA)
     Route: 042
     Dates: start: 20201101, end: 20210101
  2. CISPLATIN [Suspect]
     Active Substance: CISPLATIN
     Indication: Diffuse large B-cell lymphoma
     Dosage: (SECOND LINE WITH RITUXIMAB AND HD-BEAM)
     Route: 065
  3. DEXAMETHASONE [Suspect]
     Active Substance: DEXAMETHASONE
     Indication: Diffuse large B-cell lymphoma
     Dosage: (SECOND LINE WITH RITUXIMAB AND GDP)
     Route: 065
  4. LENALIDOMIDE [Suspect]
     Active Substance: LENALIDOMIDE
     Indication: Diffuse large B-cell lymphoma
     Dosage: (WITH TAFASITAMAB)
     Route: 065
     Dates: start: 20220601, end: 20221001
  5. GEMCITABINE [Suspect]
     Active Substance: GEMCITABINE
     Indication: Diffuse large B-cell lymphoma
     Dosage: (FIRST LINE WITH RITUXIMAB)
     Route: 065
  6. DOXORUBICIN [Suspect]
     Active Substance: DOXORUBICIN
     Indication: Diffuse large B-cell lymphoma
     Dosage: FIRST LINE WITH RITUXIMAB)
     Route: 042
     Dates: start: 201901, end: 20190701
  7. VINCRISTINE [Suspect]
     Active Substance: VINCRISTINE
     Indication: Diffuse large B-cell lymphoma
     Dosage: FIRST LINE WITH RITUXIMAB)
     Route: 042
     Dates: start: 201901, end: 20190701
  8. CARMUSTINE [Suspect]
     Active Substance: CARMUSTINE
     Indication: Diffuse large B-cell lymphoma
     Dosage: (THIRD LINE TWICE WITH RITUXIMAB)BEAM
     Route: 065
  9. ETOPOSIDE [Suspect]
     Active Substance: ETOPOSIDE
     Indication: Diffuse large B-cell lymphoma
     Dosage: (THIRD LINE TWICE WITH RITUXIMAB)BEAM
     Route: 065
  10. PREDNISONE [Suspect]
     Active Substance: PREDNISONE
     Indication: Diffuse large B-cell lymphoma
     Dosage: .(FIRST LINE WITH RITUXIMAB)
     Route: 065
     Dates: start: 201901, end: 20190701
  11. MELPHALAN [Suspect]
     Active Substance: MELPHALAN
     Indication: Diffuse large B-cell lymphoma
     Dosage: (THIRD LINE TWICE WITH RITUXIMAB)BEAM
     Route: 065
  12. CYTARABINE [Suspect]
     Active Substance: CYTARABINE
     Indication: Diffuse large B-cell lymphoma
     Dosage: THIRD LINE TWICE WITH RITUXIMAB)BEAM
     Route: 065
  13. POLATUZUMAB VEDOTIN [Suspect]
     Active Substance: POLATUZUMAB VEDOTIN
     Indication: Diffuse large B-cell lymphoma
     Dosage: .(THIRD LINE TWICE WITH RITUXIMABTHIRD LINE ONCE WITH RITUXIMAB + BENDAMUSTINE)
     Route: 065
     Dates: start: 20201101, end: 20210101
  14. MABTHERA [Suspect]
     Active Substance: RITUXIMAB
     Indication: Diffuse large B-cell lymphoma
     Dosage: (FIRST LINE WITH CHOP)
     Route: 065
     Dates: start: 20190101, end: 20190701
  15. MABTHERA [Suspect]
     Active Substance: RITUXIMAB
     Dosage: (SECOND LINE WITH GDP AND HD-BEAM)
     Route: 065
     Dates: start: 20200501, end: 20200801
  16. MABTHERA [Suspect]
     Active Substance: RITUXIMAB
     Dosage: (THIRD LINE TWICE WITH POLATUZUMAB)
     Route: 065
     Dates: start: 20201101, end: 20210101
  17. MABTHERA [Suspect]
     Active Substance: RITUXIMAB
     Dosage: (THIRD LINE ONCE WITH POLATUZUMAB AND BENDAMUSTINE)
     Route: 065
     Dates: start: 20201101, end: 20210101
  18. TAFASITAMAB [Suspect]
     Active Substance: TAFASITAMAB
     Indication: Diffuse large B-cell lymphoma
     Dosage: (WITH LENALIDOMIDE)
     Route: 065
     Dates: start: 20220601, end: 20221001
  19. CYCLOPHOSPHAMIDE [Suspect]
     Active Substance: CYCLOPHOSPHAMIDE
     Indication: Diffuse large B-cell lymphoma
     Dosage: FIRST LINE WITH RITUXIMAB)
     Route: 065
     Dates: start: 201901, end: 20190701

REACTIONS (4)
  - Lymphoma [Not Recovered/Not Resolved]
  - Hepatitis B [Unknown]
  - Hepatitis C [Recovered/Resolved]
  - Off label use [Unknown]

NARRATIVE: CASE EVENT DATE: 20201101
